FAERS Safety Report 21445207 (Version 1)
Quarter: 2022Q4

REPORT INFORMATION
  Report Type: Spontaneous
  Country: US (occurrence: US)
  Receive Date: 20221012
  Receipt Date: 20221012
  Transmission Date: 20230112
  Serious: Yes (Other)
  Sender: FDA-Public Use
  Company Number: US-SA-SAC20221011000854

PATIENT
  Sex: Female

DRUGS (1)
  1. RANITIDINE HYDROCHLORIDE [Suspect]
     Active Substance: RANITIDINE HYDROCHLORIDE
     Dosage: APPROXIMATELY 1985 TO 2020
     Route: 048
     Dates: start: 1985, end: 2020

REACTIONS (4)
  - Colorectal cancer [Unknown]
  - Lung neoplasm malignant [Unknown]
  - Uterine cancer [Unknown]
  - Cervix carcinoma [Unknown]
